FAERS Safety Report 5372991-6 (Version None)
Quarter: 2007Q2

REPORT INFORMATION
  Report Type: 
  Country: None (occurrence: None)
  Receive Date: 20070626
  Receipt Date: 20070611
  Transmission Date: 20071010
  Serious: Yes (Death)
  Sender: FDA-Public Use
  Company Number: 2007S1005148

PATIENT
  Age: 52 Year
  Sex: Female

DRUGS (10)
  1. FENTANYL [Suspect]
     Indication: NECK PAIN
     Dosage: 75 UG/HR; EVERY 3 DAYS; TRANSDERMAL
     Route: 062
     Dates: start: 20061006, end: 20061026
  2. LYRICA [Concomitant]
  3. AMBIEN [Concomitant]
  4. ELAVIL [Concomitant]
  5. SOMA [Concomitant]
  6. CYMBALTA [Concomitant]
  7. DIOVAN [Concomitant]
  8. XANAX [Concomitant]
  9. VICODIN [Concomitant]
  10. NEXIUM [Concomitant]

REACTIONS (3)
  - CARDIOMYOPATHY [None]
  - DRUG TOXICITY [None]
  - SNORING [None]
